FAERS Safety Report 5028694-0 (Version None)
Quarter: 2006Q2

REPORT INFORMATION
  Report Type: 
  Country: None (occurrence: None)
  Receive Date: 20060619
  Receipt Date: 20060609
  Transmission Date: 20061013
  Serious: Yes (Other)
  Sender: FDA-Public Use
  Company Number: JP-JNJFOC-20060603162

PATIENT
  Age: 74 Year
  Sex: Female

DRUGS (1)
  1. ITRIZOLE [Suspect]
     Indication: NAIL TINEA
     Route: 048
     Dates: start: 20060523, end: 20060529

REACTIONS (2)
  - DRUG ERUPTION [None]
  - OBSTRUCTIVE AIRWAYS DISORDER [None]
